FAERS Safety Report 4965767-2 (Version None)
Quarter: 2006Q2

REPORT INFORMATION
  Report Type: 
  Country: None (occurrence: None)
  Receive Date: 20060403
  Receipt Date: 20060328
  Transmission Date: 20061013
  Serious: Yes (Hospitalization, Other)
  Sender: FDA-Public Use
  Company Number: 04CH000007

PATIENT
  Age: 68 Year
  Sex: Female

DRUGS (6)
  1. LITHIUM CARBONATE [Suspect]
     Indication: BIPOLAR DISORDER
     Dosage: 200  MG, BID
  2. CARBAMAZEPINE [Concomitant]
  3. PIPAMPERONE (PIPAMPERONE) [Concomitant]
  4. MIRTAZAPINE [Concomitant]
  5. ROFECOXIB [Concomitant]
  6. ZOPICLONE       (ZOPICLONE) [Concomitant]

REACTIONS (16)
  - ANTIPSYCHOTIC DRUG LEVEL INCREASED [None]
  - ATRIOVENTRICULAR BLOCK COMPLETE [None]
  - BLOOD PRESSURE DECREASED [None]
  - CHILLS [None]
  - DRUG INTERACTION [None]
  - EXTRAPYRAMIDAL DISORDER [None]
  - FALL [None]
  - HYPOKINESIA [None]
  - PAIN IN EXTREMITY [None]
  - PANCYTOPENIA [None]
  - RENAL IMPAIRMENT [None]
  - SINUS ARREST [None]
  - SINUS BRADYCARDIA [None]
  - SPINAL OSTEOARTHRITIS [None]
  - THERAPEUTIC AGENT TOXICITY [None]
  - TREMOR [None]
